FAERS Safety Report 9670539 (Version 4)
Quarter: 2014Q1

REPORT INFORMATION
  Report Type: Spontaneous
  Country: US (occurrence: US)
  Receive Date: 20131106
  Receipt Date: 20140120
  Transmission Date: 20141002
  Serious: No
  Sender: FDA-Public Use
  Company Number: US-009507513-1310USA014568

PATIENT
  Sex: Female

DRUGS (3)
  1. PEGINTRON [Suspect]
     Indication: HEPATITIS C
     Dosage: DOSE 0.4 (UNITE UNSPECIFIED), ONCE EVERY 7 DAYS
     Route: 058
     Dates: start: 20131011
  2. REBETOL [Suspect]
     Indication: HEPATITIS C
     Dosage: 2 PILLS IN AM/ 1 PILL IN P.M., TWICE A DAY
     Route: 048
     Dates: start: 20131011
  3. VICTRELIS [Suspect]
     Indication: HEPATITIS C
     Dosage: UNK, THREE TIMES A DAY
     Route: 048
     Dates: start: 20131108

REACTIONS (9)
  - Blood potassium decreased [Unknown]
  - Nasopharyngitis [Unknown]
  - Fatigue [Unknown]
  - Cough [Unknown]
  - Fatigue [Unknown]
  - Diarrhoea [Unknown]
  - Depression [Unknown]
  - Diarrhoea [Unknown]
  - Haemoglobin decreased [Unknown]
